FAERS Safety Report 4492740-3 (Version None)
Quarter: 2004Q4

REPORT INFORMATION
  Report Type: 
  Country: None (occurrence: None)
  Receive Date: 20041102
  Receipt Date: 20041026
  Transmission Date: 20050328
  Serious: Yes (Hospitalization)
  Sender: FDA-Public Use
  Company Number: A0531268A

PATIENT
  Age: 59 Year
  Sex: Male

DRUGS (12)
  1. ALKERAN [Suspect]
     Indication: MULTIPLE MYELOMA
     Dosage: 200 MG/M2/TWICE PER DAY/INTRAVENOUS
     Route: 042
     Dates: start: 20040831
  2. THALIDOMIDE (THALIDOMIDE) [Suspect]
     Indication: MULTIPLE MYELOMA
     Dosage: 200 MG/ORAL
     Route: 048
     Dates: start: 20040724
  3. DEXAMETHASONE [Suspect]
     Indication: MULTIPLE MYELOMA
     Dosage: 40 MG/ORAL
     Route: 048
     Dates: start: 20040828
  4. ACYCLOVIR [Concomitant]
  5. EPOETIN ALFA [Concomitant]
  6. RANITIDINE HYDROCHLORIDE [Concomitant]
  7. LISINOPRIL [Concomitant]
  8. MAGNESIUM OXIDE [Concomitant]
  9. CALCIUM CARBONATE [Concomitant]
  10. METOCLOPRAMIDE HCL [Concomitant]
  11. LOPERAMIDE HYDROCHLORIDE [Concomitant]
  12. FOLIC ACID [Concomitant]

REACTIONS (5)
  - CATHETER RELATED COMPLICATION [None]
  - LUNG INFILTRATION [None]
  - PNEUMONIA [None]
  - PULMONARY EMBOLISM [None]
  - PYREXIA [None]
